FAERS Safety Report 8879680 (Version 1)
Quarter: 2012Q4

REPORT INFORMATION
  Report Type: 
  Country: FR (occurrence: FR)
  Receive Date: 20121031
  Receipt Date: 20121031
  Transmission Date: 20130627
  Serious: Yes (Hospitalization)
  Sender: FDA-Public Use
  Company Number: FR-GLAXOSMITHKLINE-B0839592A

PATIENT
  Age: 35 Year
  Sex: Male

DRUGS (1)
  1. MALARONE [Suspect]
     Indication: MALARIA
     Dosage: 4TAB per day
     Route: 048
     Dates: start: 20120623, end: 20120625

REACTIONS (1)
  - Hepatitis [Unknown]
